FAERS Safety Report 6467288-7 (Version None)
Quarter: 2009Q4

REPORT INFORMATION
  Report Type: 
  Country: None (occurrence: None)
  Receive Date: 20091130
  Receipt Date: 20090902
  Transmission Date: 20100525
  Serious: Yes (Other)
  Sender: FDA-Public Use
  Company Number: 2009AP003437

PATIENT
  Age: 81 Year
  Sex: Male

DRUGS (1)
  1. CAPTOPRIL [Suspect]

REACTIONS (2)
  - LICHENOID KERATOSIS [None]
  - PHOTOSENSITIVITY ALLERGIC REACTION [None]
